FAERS Safety Report 12921030 (Version 6)
Quarter: 2018Q2

REPORT INFORMATION
  Report Type: Report from Study
  Country: IN (occurrence: IN)
  Receive Date: 20161107
  Receipt Date: 20180409
  Transmission Date: 20180711
  Serious: Yes (Death, Hospitalization, Other)
  Sender: FDA-Public Use
  Company Number: PHHY2016IN138937

PATIENT
  Age: 66 Year
  Sex: Male

DRUGS (2)
  1. GLIVEC [Suspect]
     Active Substance: IMATINIB MESYLATE
     Dosage: 300 MG, QD
     Route: 065
  2. GLIVEC [Suspect]
     Active Substance: IMATINIB MESYLATE
     Indication: GASTROINTESTINAL STROMAL TUMOUR
     Dosage: 600 MG, UNK
     Route: 065

REACTIONS (28)
  - Myocardial infarction [Recovering/Resolving]
  - Urinary tract infection [Recovering/Resolving]
  - Vomiting [Recovering/Resolving]
  - Blood urea abnormal [Unknown]
  - Left ventricular dysfunction [Recovering/Resolving]
  - Nephrolithiasis [Unknown]
  - Renal impairment [Unknown]
  - Liver function test abnormal [Unknown]
  - Pulmonary oedema [Recovering/Resolving]
  - Gastric antral vascular ectasia [Recovering/Resolving]
  - Faeces discoloured [Recovering/Resolving]
  - Dizziness [Recovering/Resolving]
  - Gastrointestinal haemorrhage [Unknown]
  - Blood glucose increased [Recovering/Resolving]
  - Blood bilirubin increased [Recovering/Resolving]
  - White blood cell count decreased [Recovering/Resolving]
  - Anaemia [Recovering/Resolving]
  - Dyspnoea [Recovering/Resolving]
  - Haemorrhagic erosive gastritis [Unknown]
  - Gastrointestinal stromal tumour [Unknown]
  - Arthralgia [Recovering/Resolving]
  - Acute kidney injury [Unknown]
  - Malignant neoplasm progression [Unknown]
  - Platelet count decreased [Recovering/Resolving]
  - Death [Fatal]
  - Asthenia [Recovering/Resolving]
  - Chronic kidney disease [Unknown]
  - Abdominal mass [Unknown]

NARRATIVE: CASE EVENT DATE: 20160917
